FAERS Safety Report 8959507 (Version 1)
Quarter: 2012Q4

REPORT INFORMATION
  Report Type: 
  Country: JP (occurrence: JP)
  Receive Date: 20121212
  Receipt Date: 20121212
  Transmission Date: 20130627
  Serious: Yes (Hospitalization)
  Sender: FDA-Public Use
  Company Number: JP-009507513-2012SP014111

PATIENT
  Age: 55 Year
  Sex: Male
  Weight: 81 kg

DRUGS (16)
  1. PEGINTRON [Suspect]
     Indication: CHRONIC HEPATITIS C
     Dosage: 1.48 Microgram per kilogram, qw,daily dose unknown
     Route: 058
     Dates: start: 20120121, end: 20120217
  2. PEGINTRON [Suspect]
     Dosage: 1.38 Microgram per kilogram, qw,daily dose unknown
     Route: 058
     Dates: start: 20120218, end: 20120302
  3. PEGINTRON [Suspect]
     Dosage: 1.10 Microgram per kilogram, qw,daily dose unknown
     Route: 058
     Dates: start: 20120303, end: 20120323
  4. PEGINTRON [Suspect]
     Dosage: 1.23 Microgram per kilogram, qw,daily dose unknown
     Route: 058
     Dates: start: 20120324
  5. REBETOL [Suspect]
     Indication: CHRONIC HEPATITIS C
     Dosage: 1000 mg, qd
     Route: 048
     Dates: start: 20120121, end: 20120203
  6. REBETOL [Suspect]
     Dosage: 800 mg, qd
     Route: 048
     Dates: start: 20120204, end: 20120310
  7. REBETOL [Suspect]
     Dosage: 400 mg, qd
     Route: 048
     Dates: start: 20120311, end: 20120414
  8. REBETOL [Suspect]
     Dosage: 600 mg, qd
     Route: 048
     Dates: start: 20120415, end: 20120512
  9. TELAVIC [Suspect]
     Indication: CHRONIC HEPATITIS C
     Dosage: 2250 mg, qd
     Route: 048
     Dates: start: 20120121, end: 20120229
  10. TELAVIC [Suspect]
     Dosage: 1500 mg, qd
     Route: 048
     Dates: start: 20120301, end: 20120414
  11. XYZAL [Concomitant]
     Indication: PROPHYLAXIS
     Dosage: 5 mg, qd FORMULATION: POR
     Route: 048
     Dates: start: 20120121
  12. NEXIUM [Concomitant]
     Dosage: 20 mg, qd
     Route: 048
     Dates: end: 20120512
  13. ZYLORIC [Concomitant]
     Indication: HYPERURICAEMIA
     Dosage: UPDATE (09MAY2012)
     Route: 048
     Dates: start: 20120128, end: 20120209
  14. ZYLORIC [Concomitant]
     Dosage: 200 mg, qd
     Route: 048
     Dates: start: 20120210, end: 20120317
  15. ZYLORIC [Concomitant]
     Dosage: 100 mg, qd
     Route: 048
     Dates: start: 20120318, end: 20120421
  16. TOPSYM (FLUOCINONIDE) [Concomitant]
     Indication: RASH
     Dosage: UPDATE (09MAY2012)
     Route: 065
     Dates: start: 20120128, end: 20120130

REACTIONS (4)
  - Hepatic encephalopathy [Recovering/Resolving]
  - Hepatic encephalopathy [Recovering/Resolving]
  - Hyperammonaemia [Recovering/Resolving]
  - Platelet count decreased [Not Recovered/Not Resolved]
